FAERS Safety Report 13517007 (Version 1)
Quarter: 2017Q2

REPORT INFORMATION
  Report Type: Spontaneous
  Country: US (occurrence: US)
  Receive Date: 20170505
  Receipt Date: 20170505
  Transmission Date: 20170830
  Serious: No
  Sender: FDA-Public Use
  Company Number: US-PFIZER INC-2017197069

PATIENT
  Age: 56 Year
  Sex: Female

DRUGS (1)
  1. XELJANZ XR [Suspect]
     Active Substance: TOFACITINIB CITRATE
     Indication: RHEUMATOID ARTHRITIS
     Dosage: 11 MG, DAILY
     Route: 048
     Dates: start: 20170327

REACTIONS (6)
  - Burning sensation [Unknown]
  - Acne [Unknown]
  - Erythema [Unknown]
  - Feeling hot [Unknown]
  - Eye irritation [Unknown]
  - Flushing [Unknown]

NARRATIVE: CASE EVENT DATE: 201704
